FAERS Safety Report 7955859-8 (Version None)
Quarter: 2011Q4

REPORT INFORMATION
  Report Type: 
  Country: None (occurrence: None)
  Receive Date: 20111205
  Receipt Date: 20111129
  Transmission Date: 20120403
  Serious: No
  Sender: FDA-Public Use
  Company Number: US-BIOGENIDEC-2011BI042991

PATIENT
  Sex: Female

DRUGS (1)
  1. TYSABRI [Suspect]
     Indication: MULTIPLE SCLEROSIS
     Route: 042
     Dates: start: 20110516

REACTIONS (17)
  - BACK INJURY [None]
  - VISUAL IMPAIRMENT [None]
  - DYSURIA [None]
  - VISION BLURRED [None]
  - ABASIA [None]
  - URINARY RETENTION [None]
  - DYSSTASIA [None]
  - MULTIPLE SCLEROSIS RELAPSE [None]
  - BACK PAIN [None]
  - TINNITUS [None]
  - PAIN [None]
  - TEMPERATURE INTOLERANCE [None]
  - HEADACHE [None]
  - GAIT DISTURBANCE [None]
  - STRESS [None]
  - HEAD INJURY [None]
  - DIZZINESS [None]
